FAERS Safety Report 9237998 (Version 1)
Quarter: 2013Q1

REPORT INFORMATION
  Report Type: Spontaneous
  Country: US (occurrence: None)
  Receive Date: 20130329
  Receipt Date: 20130329
  Transmission Date: 20140127
  Serious: Yes (Other)
  Sender: FDA-Public Use
  Company Number: 2011029947

PATIENT
  Age: 52 Year
  Sex: Female
  Weight: 51.26 kg

DRUGS (36)
  1. HIZENTRA (IMMUNOGLOBULIN HUMAN NORMAL) [Suspect]
     Indication: IMMUNODEFICIENCY COMMON VARIABLE
     Dosage: 10 G 1X/WK, 50 ML VIA MULTIPLE SITES OVER 1/2 HR. SUB, () (12G 1XWK, 4 GM 20 ML IN 1/2 HR SUB
     Dates: start: 20101020
  2. CIPRO (CIPROFLOXACIN) [Concomitant]
  3. AMOXICILLIN (AMOXICILLIN) [Concomitant]
  4. BACTROBAN (MUPIROCIN) [Concomitant]
  5. CLONAZEPAM (CLONAZEPAM) (CLONAZEPAM) [Concomitant]
  6. WELLBUTRIN (BUPROPION) [Concomitant]
  7. VITAMIN B12 (CYANOCOBALAMIN) [Concomitant]
  8. DIPHENHYDRAMINE (DIPHENHYDRAMINE) [Concomitant]
  9. FOLIC ACID (FOLIC ACID) [Concomitant]
  10. TIZANIDINE (TIZANIDINE) [Concomitant]
  11. VITAMIN B6 (PYRIDOXINE HYDROCHLORIDE) [Concomitant]
  12. TYLENOL (PARACETAMOL) [Concomitant]
  13. IMMODIUM (LOPERAMIDE) [Concomitant]
  14. EFFEXOR (VENLAFIXINE) [Concomitant]
  15. MORPHINE [Concomitant]
  16. HYDROCORTISONE (HYDROCORTISONE) [Concomitant]
  17. AVINZA (MORPHINE SULFATE) [Concomitant]
  18. PHENERGAN (PROCHLORPERAZINE) [Concomitant]
  19. COMPAZINE (PROCHLORPERAZINE) [Concomitant]
  20. PROTONIX (PANTOPRAZOLE) [Concomitant]
  21. ALBUTEROL (SALBUTAMOL) [Concomitant]
  22. VITAMINS [Concomitant]
  23. LIDOCAINE PRILOCAINE (EMLA /00675501/) [Concomitant]
  24. EIPPEN (EPINEPHRINE) [Concomitant]
  25. LMX (LIDOCAINE) [Concomitant]
  26. CUBICIN (DAPTOMYCIN) [Concomitant]
  27. VANCOMYCIN (VANCOMYCIN) [Concomitant]
  28. ZOSYN (PIP/TAZO) [Concomitant]
  29. CITALOPRAM (CITALOPRAM) [Concomitant]
  30. DOXYCYCLINE (DOXYCYCLINE) [Concomitant]
  31. TRIAMCINOLONE (TRIAMCINOLONE) [Concomitant]
  32. AFRIN (OXYMETAZOLINE) [Concomitant]
  33. FENTANYL (FENTANYL) [Concomitant]
  34. ALBUTEROL (SALBUTAMOL) [Concomitant]
  35. SEPTRA (BACTRIM/00086101/) [Concomitant]
  36. BOOST HIGH PROTEIN (BOOST) [Concomitant]

REACTIONS (8)
  - Joint swelling [None]
  - Chills [None]
  - Oedema [None]
  - Headache [None]
  - Rash [None]
  - Sinusitis [None]
  - Respiratory tract infection [None]
  - Infusion site extravasation [None]
